FAERS Safety Report 4573661-4 (Version None)
Quarter: 2005Q1

REPORT INFORMATION
  Report Type: 
  Country: None (occurrence: None)
  Receive Date: 20050203
  Receipt Date: 20050120
  Transmission Date: 20050727
  Serious: No
  Sender: FDA-Public Use
  Company Number: 2005UW01103

PATIENT
  Age: 57 Year
  Sex: Female

DRUGS (5)
  1. ATENOLOL [Suspect]
     Indication: HYPERTENSION
     Dosage: 100 MG DAILY PO
     Route: 048
  2. NORVASC [Suspect]
     Indication: HYPERTENSION
     Dosage: 10 MG DAILY
  3. NORVASC [Suspect]
     Indication: HYPERTENSION
     Dosage: 5 MG DAILY
  4. ENDOCET [Concomitant]
  5. LISINOPRIL [Concomitant]

REACTIONS (6)
  - DRUG INEFFECTIVE [None]
  - HEADACHE [None]
  - HYPERSENSITIVITY [None]
  - HYPERTENSION [None]
  - NASAL DISORDER [None]
  - TREATMENT NONCOMPLIANCE [None]
